FAERS Safety Report 7183585-4 (Version None)
Quarter: 2010Q4

REPORT INFORMATION
  Report Type: 
  Country: None (occurrence: None)
  Receive Date: 20101222
  Receipt Date: 20101216
  Transmission Date: 20110411
  Serious: Yes (Hospitalization)
  Sender: FDA-Public Use
  Company Number: AT-AMGEN-AUTCT2010001087

PATIENT
  Sex: Female

DRUGS (4)
  1. DENOSUMAB [Suspect]
     Indication: BONE DENSITY DECREASED
     Dates: start: 20080410
  2. ARIMIDEX [Concomitant]
     Dosage: UNK UNK, QD
     Dates: start: 20080311
  3. EUTHYROX [Concomitant]
     Dosage: 100 MG, QD
  4. NOMEXOR [Concomitant]
     Dosage: 5 MG, UNK

REACTIONS (2)
  - CONTUSION [None]
  - TENDON INJURY [None]
